FAERS Safety Report 8913037 (Version 3)
Quarter: 2013Q2

REPORT INFORMATION
  Report Type: Spontaneous
  Country: US (occurrence: None)
  Receive Date: 20121113
  Receipt Date: 20130423
  Transmission Date: 20140414
  Serious: Yes (Other)
  Sender: FDA-Public Use
  Company Number: ACO_32893_2012

PATIENT
  Age: 60 Year
  Sex: Female

DRUGS (5)
  1. AMPYRA [Suspect]
     Indication: PRODUCT USED FOR UNKNOWN INDICATION
     Dates: start: 201202, end: 20120223
  2. TYSABRI (NATALIZUMAB) [Concomitant]
  3. SYNTHROID (LEVOTHYROXINE SODIUM) [Concomitant]
  4. ASPIRIN (ACETYLSALICYLIC ACID) [Concomitant]
  5. MULTIVITAMIN (VITAMINS NOS) [Concomitant]

REACTIONS (8)
  - Autoimmune disorder [None]
  - Blister [None]
  - Pain [None]
  - Tongue blistering [None]
  - Blister rupture [None]
  - Rash [None]
  - Pruritus [None]
  - Skin disorder [None]
